FAERS Safety Report 12155422 (Version 1)
Quarter: 2016Q1

REPORT INFORMATION
  Report Type: Spontaneous
  Country: US (occurrence: US)
  Receive Date: 20160307
  Receipt Date: 20160307
  Transmission Date: 20160526
  Serious: No
  Sender: FDA-Public Use
  Company Number: US-ASTRAZENECA-2016SE16441

PATIENT
  Sex: Female
  Weight: 45.4 kg

DRUGS (6)
  1. BABY ASPIRIN [Concomitant]
     Active Substance: ASPIRIN
     Indication: CARDIAC DISORDER
  2. LISINOPRIL. [Suspect]
     Active Substance: LISINOPRIL
     Indication: BLOOD PRESSURE ABNORMAL
     Route: 048
  3. SYMBICORT [Suspect]
     Active Substance: BUDESONIDE\FORMOTEROL FUMARATE DIHYDRATE
     Dosage: 160/4.5 MCG, 1 PUFF TWICE A DAY
     Route: 055
     Dates: start: 2010, end: 201602
  4. SYMBICORT [Suspect]
     Active Substance: BUDESONIDE\FORMOTEROL FUMARATE DIHYDRATE
     Dosage: 160/4.5 MCG, 1 PUFF TWICE A DAY
     Route: 055
  5. DILTIAZEM [Concomitant]
     Active Substance: DILTIAZEM
  6. ATORVASTATIN [Concomitant]
     Active Substance: ATORVASTATIN

REACTIONS (5)
  - Dyspnoea [Unknown]
  - Body height decreased [Unknown]
  - Off label use [Unknown]
  - Product packaging quantity issue [Unknown]
  - Drug dose omission [Unknown]
